FAERS Safety Report 7611891-5 (Version None)
Quarter: 2011Q3

REPORT INFORMATION
  Report Type: 
  Country: None (occurrence: None)
  Receive Date: 20110715
  Receipt Date: 20110713
  Transmission Date: 20111222
  Serious: Yes (Death, Hospitalization)
  Sender: FDA-Public Use
  Company Number: US-BRISTOL-MYERS SQUIBB COMPANY-15844210

PATIENT
  Age: 75 Year
  Sex: Male

DRUGS (14)
  1. COMPAZINE [Concomitant]
     Indication: NAUSEA
  2. COUMADIN [Concomitant]
     Dosage: 5 MG MON-FRI;7.5 MG SAT AND SUN
  3. OMEPRAZOLE [Concomitant]
  4. ATENOLOL [Concomitant]
  5. YERVOY [Suspect]
     Indication: MALIGNANT MELANOMA
     Dosage: 3 DOSES.LOT 917039 EXP 31AUG2013; LOT 916766 EXP 31JUL2013; LOT 917038 EXP 31JUL2013;
     Route: 042
     Dates: start: 20110418
  6. CARDIZEM [Concomitant]
  7. MAG-OX [Concomitant]
  8. PLAVIX [Concomitant]
  9. LEXAPRO [Concomitant]
  10. ONDANSETRON [Concomitant]
  11. ASPIRIN [Concomitant]
  12. INSULIN [Concomitant]
  13. NEURONTIN [Concomitant]
  14. PHENERGAN HCL [Concomitant]

REACTIONS (2)
  - RESPIRATORY FAILURE [None]
  - SEPTIC SHOCK [None]
